FAERS Safety Report 19483075 (Version 2)
Quarter: 2021Q3

REPORT INFORMATION
  Report Type: Spontaneous
  Country: US (occurrence: US)
  Receive Date: 20210701
  Receipt Date: 20210824
  Transmission Date: 20211014
  Serious: Yes (Other)
  Sender: FDA-Public Use
  Company Number: US-JNJFOC-20210646363

PATIENT
  Age: 47 Year
  Sex: Female

DRUGS (3)
  1. ELMIRON [Suspect]
     Active Substance: PENTOSAN POLYSULFATE SODIUM
     Indication: CYSTITIS INTERSTITIAL
     Dosage: START DATE 01?JAN?1980
     Route: 048
     Dates: start: 1996, end: 20000911
  2. ELMIRON [Suspect]
     Active Substance: PENTOSAN POLYSULFATE SODIUM
     Route: 048
     Dates: start: 20000911
  3. ELMIRON [Suspect]
     Active Substance: PENTOSAN POLYSULFATE SODIUM
     Route: 048
     Dates: end: 202009

REACTIONS (4)
  - Off label use [Unknown]
  - Retinal injury [Unknown]
  - Incorrect dose administered [Unknown]
  - Maculopathy [Unknown]

NARRATIVE: CASE EVENT DATE: 20000911
